FAERS Safety Report 6238814-8 (Version None)
Quarter: 2009Q2

REPORT INFORMATION
  Report Type: 
  Country: None (occurrence: None)
  Receive Date: 20090618
  Receipt Date: 20090604
  Transmission Date: 20091009
  Serious: Yes (Hospitalization)
  Sender: FDA-Public Use
  Company Number: 2009AP002411

PATIENT
  Age: 47 Year
  Sex: Male

DRUGS (1)
  1. CARBAMAZEPINE [Suspect]
     Dosage: TAB;PO
     Route: 048
     Dates: start: 20090501, end: 20090520

REACTIONS (2)
  - HEPATITIS TOXIC [None]
  - RASH [None]
